FAERS Safety Report 24188790 (Version 1)
Quarter: 2024Q3

REPORT INFORMATION
  Report Type: Spontaneous
  Country: US (occurrence: US)
  Receive Date: 20240808
  Receipt Date: 20240808
  Transmission Date: 20241017
  Serious: No
  Sender: OTSUKA
  Company Number: US-OTSUKA-2024_001962

PATIENT
  Age: 23 Year
  Sex: Female

DRUGS (8)
  1. ARIPIPRAZOLE [Suspect]
     Active Substance: ARIPIPRAZOLE
     Indication: Psychotic disorder
     Dosage: 5 MG, QD
     Route: 065
  2. ARIPIPRAZOLE [Suspect]
     Active Substance: ARIPIPRAZOLE
     Indication: Catatonia
  3. LORAZEPAM [Concomitant]
     Active Substance: LORAZEPAM
     Indication: Psychotic disorder
     Dosage: 1 MG, BID
     Route: 065
  4. LORAZEPAM [Concomitant]
     Active Substance: LORAZEPAM
     Indication: Catatonia
  5. DROPERIDOL [Concomitant]
     Active Substance: DROPERIDOL
     Indication: Muscle rigidity
     Dosage: 1.25 MG
     Route: 065
  6. DROPERIDOL [Concomitant]
     Active Substance: DROPERIDOL
     Indication: Speech disorder
  7. MIDAZOLAM [Concomitant]
     Active Substance: MIDAZOLAM
     Indication: Muscle rigidity
     Dosage: 2.5 MG
     Route: 065
  8. MIDAZOLAM [Concomitant]
     Active Substance: MIDAZOLAM
     Indication: Speech disorder

REACTIONS (1)
  - Drug effective for unapproved indication [Unknown]
